FAERS Safety Report 8594819-3 (Version None)
Quarter: 2012Q3

REPORT INFORMATION
  Report Type: 
  Country: None (occurrence: None)
  Receive Date: 20120815
  Receipt Date: 20120807
  Transmission Date: 20120928
  Serious: Yes (Hospitalization, Other)
  Sender: FDA-Public Use
  Company Number: US-BAYER-2012-015843

PATIENT
  Age: 43 Year
  Sex: Female
  Weight: 44.444 kg

DRUGS (8)
  1. YAZ [Suspect]
     Indication: PREMENSTRUAL SYNDROME
  2. PREVACID [Concomitant]
     Dosage: 30 MG, UNK
  3. FERROUS SULFATE TAB [Concomitant]
     Indication: ANAEMIA
     Dosage: 325 MG, UNK
  4. LIBRAX [Concomitant]
  5. YASMIN [Suspect]
     Indication: CONTRACEPTION
     Dosage: UNK
     Dates: start: 20080601, end: 20100201
  6. YAZ [Suspect]
     Indication: CONTRACEPTION
     Dosage: UNK
     Dates: start: 20080601, end: 20100201
  7. YASMIN [Suspect]
     Indication: PREMENSTRUAL SYNDROME
  8. IRON SUPPLEMENT [Concomitant]
     Indication: ANAEMIA

REACTIONS (5)
  - GALLBLADDER DISORDER [None]
  - BILIARY DYSKINESIA [None]
  - MENTAL DISORDER [None]
  - INJURY [None]
  - PAIN [None]
